FAERS Safety Report 5030642-4 (Version None)
Quarter: 2006Q2

REPORT INFORMATION
  Report Type: 
  Country: None (occurrence: None)
  Receive Date: 20060615
  Receipt Date: 20060607
  Transmission Date: 20061013
  Serious: Yes (Hospitalization)
  Sender: FDA-Public Use
  Company Number: 2006058465

PATIENT
  Age: 50 Year
  Sex: Male
  Weight: 127.0072 kg

DRUGS (1)
  1. CELEBREX [Suspect]
     Indication: SURGERY
     Dosage: 400 MG (UNKNOWN)
     Route: 065
     Dates: start: 20010501

REACTIONS (18)
  - BACTERIAL INFECTION [None]
  - BALANCE DISORDER [None]
  - CANDIDIASIS [None]
  - CARDIAC DISORDER [None]
  - CARDIAC VALVE DISEASE [None]
  - CARDIAC VALVE VEGETATION [None]
  - CEREBROVASCULAR ACCIDENT [None]
  - COUGH [None]
  - ENDOCARDITIS [None]
  - EYE DISCHARGE [None]
  - FUNGAL ENDOCARDITIS [None]
  - MITRAL VALVE INCOMPETENCE [None]
  - MITRAL VALVE STENOSIS [None]
  - MUSCULAR WEAKNESS [None]
  - NERVOUS SYSTEM DISORDER [None]
  - STAPHYLOCOCCAL BACTERAEMIA [None]
  - TRICUSPID VALVE INCOMPETENCE [None]
  - VENTRICULAR HYPERTROPHY [None]
